FAERS Safety Report 4522807-2 (Version None)
Quarter: 2004Q4

REPORT INFORMATION
  Report Type: 
  Country: None (occurrence: None)
  Receive Date: 20041209
  Receipt Date: 20041201
  Transmission Date: 20050328
  Serious: Yes (Death, Congenital Anomaly)
  Sender: FDA-Public Use
  Company Number: FR-MERCK-0412FRA00016

PATIENT
  Age: -14 Day

DRUGS (2)
  1. COZAAR [Suspect]
     Indication: HYPERTENSION
  2. BISOPROLOL FUMARATE [Concomitant]
     Indication: HYPERTENSION

REACTIONS (4)
  - ABORTION INDUCED [None]
  - DRUG EXPOSURE DURING PREGNANCY [None]
  - PREGNANCY [None]
  - RENAL AGENESIS [None]
